FAERS Safety Report 8473512-1 (Version None)
Quarter: 2012Q2

REPORT INFORMATION
  Report Type: 
  Country: None (occurrence: None)
  Receive Date: 20120625
  Receipt Date: 20120625
  Transmission Date: 20120825
  Serious: Yes (Hospitalization)
  Sender: FDA-Public Use
  Company Number: None

PATIENT
  Age: 88 Year
  Sex: Female
  Weight: 74.8 kg

DRUGS (1)
  1. ALENDRONATE SODIUM [Suspect]
     Indication: OSTEOPOROSIS
     Dosage: 70 MG WEEKLY PO
     Route: 048

REACTIONS (5)
  - HAEMATEMESIS [None]
  - EROSIVE OESOPHAGITIS [None]
  - HIP FRACTURE [None]
  - FALL [None]
  - OCCULT BLOOD POSITIVE [None]
